FAERS Safety Report 15358211 (Version 1)
Quarter: 2018Q3

REPORT INFORMATION
  Report Type: Spontaneous
  Country: US (occurrence: US)
  Receive Date: 20180906
  Receipt Date: 20180906
  Transmission Date: 20181010
  Serious: No
  Sender: FDA-Public Use
  Company Number: US-PERRIGO-18US005076

PATIENT
  Age: 67 Year
  Sex: Female
  Weight: 67.57 kg

DRUGS (1)
  1. MINOXIDIL. [Suspect]
     Active Substance: MINOXIDIL
     Indication: ALOPECIA
     Dosage: 4 TO 5 ML, QD
     Route: 061
     Dates: start: 20180506

REACTIONS (2)
  - Product administered at inappropriate site [Unknown]
  - Overdose [Unknown]

NARRATIVE: CASE EVENT DATE: 20180506
